FAERS Safety Report 10069870 (Version 1)
Quarter: 2014Q2

REPORT INFORMATION
  Report Type: Spontaneous
  Country: US (occurrence: US)
  Receive Date: 20140410
  Receipt Date: 20140410
  Transmission Date: 20141212
  Serious: No
  Sender: FDA-Public Use
  Company Number: US-PFIZER INC-2014098091

PATIENT
  Age: 65 Year
  Sex: Female

DRUGS (1)
  1. XALKORI [Suspect]
     Indication: LUNG NEOPLASM MALIGNANT
     Dosage: 250 MG, 2X/DAY
     Route: 048
     Dates: start: 20140314

REACTIONS (5)
  - Chest pain [Recovered/Resolved]
  - Flatulence [Recovered/Resolved]
  - Vision blurred [Recovered/Resolved]
  - Vertigo [Recovered/Resolved]
  - Abdominal pain upper [Recovered/Resolved]
